FAERS Safety Report 7689522-8 (Version None)
Quarter: 2011Q3

REPORT INFORMATION
  Report Type: 
  Country: None (occurrence: None)
  Receive Date: 20110817
  Receipt Date: 20110725
  Transmission Date: 20111222
  Serious: No
  Sender: FDA-Public Use
  Company Number: US-TYCO HEALTHCARE/MALLINCKRODT-T201101458

PATIENT
  Sex: Female
  Weight: 40.816 kg

DRUGS (10)
  1. FENTANYL-100 [Suspect]
     Indication: PAIN
     Dosage: 100 UG/HR, EVERY OTHER DAY
     Route: 062
     Dates: start: 20110601, end: 20110601
  2. SIMAVASTATIN [Concomitant]
     Indication: BLOOD CHOLESTEROL INCREASED
     Dosage: 20 MG, QD
     Route: 048
  3. OMEPRAZOLE [Concomitant]
     Indication: DYSPEPSIA
     Dosage: 20 MG, BID
  4. CARISOPRODOL [Concomitant]
     Indication: PAIN
     Dosage: 350 MG, TID, PRN
  5. SPIRIVA [Concomitant]
     Indication: CHRONIC OBSTRUCTIVE PULMONARY DISEASE
     Dosage: UNK
  6. FENTANYL [Concomitant]
     Indication: PAIN
     Dosage: 100 UG/HR, QOD
     Route: 062
     Dates: start: 20070101, end: 20110601
  7. ADVAIR DISKUS 100/50 [Concomitant]
     Indication: CHRONIC OBSTRUCTIVE PULMONARY DISEASE
     Dosage: UNK
  8. GABAPENTIN [Concomitant]
     Indication: NEUROPATHY PERIPHERAL
     Dosage: 800 MG, QID
     Route: 048
  9. TRAZODONE HCL [Concomitant]
     Indication: INSOMNIA
  10. OXYCODONE HCL [Concomitant]
     Indication: PAIN
     Dosage: 15 MG, TID, PRN

REACTIONS (3)
  - APPLICATION SITE DISCOLOURATION [None]
  - APPLICATION SITE PAIN [None]
  - APPLICATION SITE EXFOLIATION [None]
